FAERS Safety Report 4473662-0 (Version None)
Quarter: 2004Q4

REPORT INFORMATION
  Report Type: 
  Country: None (occurrence: None)
  Receive Date: 20041013
  Receipt Date: 20041005
  Transmission Date: 20050328
  Serious: Yes (Hospitalization)
  Sender: FDA-Public Use
  Company Number: US-MERCK-0410USA00723

PATIENT
  Age: 68 Year
  Sex: Male

DRUGS (6)
  1. AMIODARONE [Concomitant]
     Route: 065
  2. MEDICINALPRODUCT NOT SPECIFIED BY SENDER [Suspect]
     Route: 065
  3. MEDICINALPRODUCT NOT SPECIFIED BY SENDER [Concomitant]
     Route: 065
  4. CANCIDAS [Suspect]
     Indication: ENDOCARDITIS CANDIDA
     Route: 042
  5. CANCIDAS [Suspect]
     Route: 042
  6. MEDICINALPRODUCT NOT SPECIFIED BY SENDER [Suspect]
     Route: 065

REACTIONS (12)
  - ANTIBODY TEST POSITIVE [None]
  - AORTIC THROMBOSIS [None]
  - CEREBRAL INFARCTION [None]
  - HEPATIC HAEMATOMA [None]
  - HYPOTENSION [None]
  - MITRAL VALVE PROLAPSE [None]
  - PYREXIA [None]
  - RENAL CYST [None]
  - SEPTIC EMBOLUS [None]
  - SUBDURAL HAEMORRHAGE [None]
  - THROMBOCYTOPENIA [None]
  - VENTRICULAR TACHYCARDIA [None]
